FAERS Safety Report 14061100 (Version 1)
Quarter: 2017Q4

REPORT INFORMATION
  Report Type: Spontaneous
  Country: GB (occurrence: GB)
  Receive Date: 20171008
  Receipt Date: 20171008
  Transmission Date: 20180321
  Serious: Yes (Hospitalization, Other)
  Sender: FDA-Public Use
  Company Number: GB-ENDO PHARMACEUTICALS INC-2017-005266

PATIENT
  Age: 26 Year
  Sex: Male

DRUGS (3)
  1. KETALAR [Suspect]
     Active Substance: KETAMINE HYDROCHLORIDE
     Indication: SUBSTANCE USE
     Dosage: UNK UNK, UNKNOWN
     Route: 045
  2. CANNABANOIDS [Suspect]
     Active Substance: CANNABINOL
     Indication: PRODUCT USED FOR UNKNOWN INDICATION
     Dosage: UNK UNK, UNKNOWN
     Route: 065
  3. LIGNOCAINE                         /00033401/ [Suspect]
     Active Substance: LIDOCAINE HYDROCHLORIDE
     Indication: PRODUCT USED FOR UNKNOWN INDICATION
     Dosage: UNK UNK, UNKNOWN
     Route: 065

REACTIONS (10)
  - Acute kidney injury [Recovered/Resolved]
  - Drug abuse [Unknown]
  - Biliary sepsis [Recovered/Resolved]
  - Hydronephrosis [Recovered/Resolved]
  - Biliary dilatation [Recovered/Resolved]
  - Aspiration [Recovered/Resolved]
  - Metabolic acidosis [Recovered/Resolved]
  - Staphylococcal infection [Recovered/Resolved]
  - Liver function test abnormal [Unknown]
  - Cystitis noninfective [Unknown]
